FAERS Safety Report 6886813-5 (Version None)
Quarter: 2010Q3

REPORT INFORMATION
  Report Type: 
  Country: None (occurrence: None)
  Receive Date: 20100730
  Receipt Date: 20100722
  Transmission Date: 20110219
  Serious: Yes (Other)
  Sender: FDA-Public Use
  Company Number: US-PFIZER INC-2010072130

PATIENT
  Sex: Female

DRUGS (1)
  1. DEPO-PROVERA [Suspect]
     Dosage: 150 MG, UNK
     Route: 030
     Dates: start: 20100528

REACTIONS (5)
  - HOT FLUSH [None]
  - HYPERTENSION [None]
  - MENORRHAGIA [None]
  - PALPITATIONS [None]
  - PANIC ATTACK [None]
